FAERS Safety Report 8333335-0 (Version None)
Quarter: 2012Q2

REPORT INFORMATION
  Report Type: 
  Country: None (occurrence: None)
  Receive Date: 20120503
  Receipt Date: 20120430
  Transmission Date: 20120825
  Serious: Yes (Other)
  Sender: FDA-Public Use
  Company Number: BR-PFIZER INC-2012063333

PATIENT
  Age: 43 Year
  Sex: Female
  Weight: 48 kg

DRUGS (7)
  1. ONBRIZE [Concomitant]
     Indication: EMPHYSEMA
     Dosage: STRENGTH 500 UG AT AN UNSPECIFIED DOSAGE AND FREQUENCY
     Route: 055
     Dates: start: 20120305
  2. DORFLEX [Concomitant]
     Indication: MYALGIA
     Dosage: UNK
     Dates: start: 20120305
  3. ONBRIZE [Concomitant]
     Indication: LUNG INFECTION
  4. VARENICLINE TARTRATE [Suspect]
     Dosage: 1 MG, 2X/DAY
     Route: 048
     Dates: start: 20120301
  5. DAXAS [Concomitant]
     Indication: EMPHYSEMA
     Dosage: 500 MG, EVERY NIGHT (1 TABLET EVERY NIGHT)
     Dates: start: 20120305
  6. DAXAS [Concomitant]
     Indication: LUNG INFECTION
  7. VARENICLINE TARTRATE [Suspect]
     Indication: SMOKING CESSATION THERAPY
     Dosage: 0.5 MG, 1X/DAY
     Route: 048
     Dates: start: 20120101, end: 20120301

REACTIONS (19)
  - EATING DISORDER [None]
  - THIRST DECREASED [None]
  - LUNG DISORDER [None]
  - DECREASED APPETITE [None]
  - DYSURIA [None]
  - ABDOMINAL PAIN [None]
  - DIARRHOEA [None]
  - VAGINAL DISCHARGE [None]
  - HEADACHE [None]
  - INSOMNIA [None]
  - PAIN IN EXTREMITY [None]
  - WEIGHT DECREASED [None]
  - FEELING ABNORMAL [None]
  - ABDOMINAL PAIN UPPER [None]
  - DRY MOUTH [None]
  - PAIN [None]
  - SINUSITIS [None]
  - DEPRESSED MOOD [None]
  - MYALGIA [None]
